FAERS Safety Report 14380203 (Version 1)
Quarter: 2018Q1

REPORT INFORMATION
  Report Type: Spontaneous
  Country: US (occurrence: US)
  Receive Date: 20180111
  Receipt Date: 20180111
  Transmission Date: 20180509
  Serious: No
  Sender: FDA-Public Use
  Company Number: None

PATIENT
  Age: 27 Year
  Sex: Female
  Weight: 50.85 kg

DRUGS (6)
  1. FLUTICAZONE [Concomitant]
  2. ESCITALOPRAM [Suspect]
     Active Substance: ESCITALOPRAM OXALATE
     Indication: PANIC DISORDER
     Dosage: ?          QUANTITY:1 TABLET(S);?
     Route: 048
  3. OMPERAZOLE [Concomitant]
     Active Substance: OMEPRAZOLE
  4. ESCITALOPRAM [Suspect]
     Active Substance: ESCITALOPRAM OXALATE
     Indication: ANXIETY
     Dosage: ?          QUANTITY:1 TABLET(S);?
     Route: 048
  5. CETIRIZINE [Concomitant]
     Active Substance: CETIRIZINE HYDROCHLORIDE
  6. ONE A DAY WOMEN^S SUPPLEMENT [Concomitant]

REACTIONS (7)
  - Vomiting [None]
  - Decreased appetite [None]
  - Abdominal discomfort [None]
  - Nausea [None]
  - Migraine [None]
  - Product substitution issue [None]
  - Influenza [None]

NARRATIVE: CASE EVENT DATE: 20180110
